FAERS Safety Report 8047139-X (Version None)
Quarter: 2012Q1

REPORT INFORMATION
  Report Type: 
  Country: None (occurrence: None)
  Receive Date: 20120116
  Receipt Date: 20120106
  Transmission Date: 20120608
  Serious: Yes (Other)
  Sender: FDA-Public Use
  Company Number: GB-TEVA-316775ISR

PATIENT
  Age: 64 Year
  Sex: Male
  Weight: 112 kg

DRUGS (7)
  1. IRBESARTAN [Concomitant]
  2. ASPIRIN [Concomitant]
     Dosage: AT BREAKFAST
  3. LANSOPRAZOLE [Concomitant]
     Dosage: AT BREAKFAST
  4. EZETIMIBE [Concomitant]
     Dosage: AT BREAKFAST.
  5. SILDENAFIL [Concomitant]
  6. ADIZEM-XL [Concomitant]
     Dosage: MODIFIED RELEASE. AT BREAKFAST
  7. DOXAZOSIN MESYLATE [Suspect]
     Indication: HYPERTENSION
     Route: 048

REACTIONS (1)
  - HYPOGLYCAEMIA [None]
